FAERS Safety Report 6731718-3 (Version None)
Quarter: 2010Q2

REPORT INFORMATION
  Report Type: 
  Country: None (occurrence: None)
  Receive Date: 20100518
  Receipt Date: 20100518
  Transmission Date: 20101027
  Serious: Yes (Hospitalization)
  Sender: FDA-Public Use
  Company Number: None

PATIENT
  Age: 84 Year
  Sex: Male

DRUGS (6)
  1. COLISTIN SULFATE [Suspect]
     Indication: PNEUMONIA
     Dosage: 150 MG Q12H IV BOLUS
     Route: 040
     Dates: start: 20100215, end: 20100221
  2. COLISTIN SULFATE [Suspect]
     Indication: SEPSIS
     Dosage: 150 MG Q12H IV BOLUS
     Route: 040
     Dates: start: 20100215, end: 20100221
  3. COLISTIN SULFATE [Suspect]
     Indication: URINARY TRACT INFECTION
     Dosage: 150 MG Q12H IV BOLUS
     Route: 040
     Dates: start: 20100215, end: 20100221
  4. TOBRAMYCIN [Suspect]
     Indication: PNEUMONIA
     Dosage: 150 MG Q24H IV BOLUS
     Route: 040
     Dates: start: 20100206, end: 20100220
  5. TOBRAMYCIN [Suspect]
     Indication: SEPSIS
     Dosage: 150 MG Q24H IV BOLUS
     Route: 040
     Dates: start: 20100206, end: 20100220
  6. TOBRAMYCIN [Suspect]
     Indication: URINARY TRACT INFECTION
     Dosage: 150 MG Q24H IV BOLUS
     Route: 040
     Dates: start: 20100206, end: 20100220

REACTIONS (1)
  - RENAL FAILURE ACUTE [None]
